FAERS Safety Report 15831059 (Version 1)
Quarter: 2018Q4

REPORT INFORMATION
  Report Type: Spontaneous
  Country: US (occurrence: US)
  Receive Date: 20181218
  Receipt Date: 20181218
  Transmission Date: 20190205
  Serious: Yes (Hospitalization)
  Sender: FDA-Public Use
  Company Number: None

PATIENT
  Age: 24 Year
  Sex: Female
  Weight: 68.3 kg

DRUGS (11)
  1. MULTIVITAMINS [VITAMINS NOS] [Concomitant]
     Active Substance: VITAMINS
  2. EPIDIOLEX [Suspect]
     Active Substance: CANNABIDIOL
  3. FOLIC ACID. [Concomitant]
     Active Substance: FOLIC ACID
  4. VANCOMYCIN [Concomitant]
     Active Substance: VANCOMYCIN
  5. EPIDIOLEX [Suspect]
     Active Substance: CANNABIDIOL
     Indication: EPILEPSY
  6. PHENYTOIN. [Concomitant]
     Active Substance: PHENYTOIN
  7. SENNA [SENNOSIDE A+B] (SENNOSIDE A+B) [Concomitant]
  8. ONFI [Concomitant]
     Active Substance: CLOBAZAM
  9. LACOSAMIDE. [Concomitant]
     Active Substance: LACOSAMIDE
  10. CLONAZEPAM. [Concomitant]
     Active Substance: CLONAZEPAM
  11. ZOFRAN [Concomitant]
     Active Substance: ONDANSETRON HYDROCHLORIDE

REACTIONS (5)
  - Diarrhoea [None]
  - Weight decreased [None]
  - Dehydration [None]
  - Vomiting [None]
  - Nausea [None]

NARRATIVE: CASE EVENT DATE: 20181115
